FAERS Safety Report 4308585-0 (Version None)
Quarter: 2004Q1

REPORT INFORMATION
  Report Type: 
  Country: None (occurrence: None)
  Receive Date: 20040301
  Receipt Date: 20040223
  Transmission Date: 20041129
  Serious: Yes (Death)
  Sender: FDA-Public Use
  Company Number: WAES 0402BEL00023

PATIENT
  Age: 35 Year
  Sex: Male
  Weight: 75 kg

DRUGS (5)
  1. FUNGIZONE [Concomitant]
     Indication: FUNGAL INFECTION
     Route: 042
     Dates: start: 20031212, end: 20031222
  2. CANCIDAS [Suspect]
     Indication: FUNGAL INFECTION
     Route: 042
     Dates: start: 20031226, end: 20040116
  3. CORTICOSTEROIDS (UNSPECIFIED) [Concomitant]
     Route: 048
  4. DIFLUCAN [Concomitant]
     Indication: INFECTION PROPHYLAXIS
     Route: 042
     Dates: start: 20031208, end: 20031212
  5. SPORANOX [Concomitant]
     Indication: INFECTION PROPHYLAXIS
     Route: 048
     Dates: start: 20031201, end: 20031208

REACTIONS (1)
  - DEATH [None]
